FAERS Safety Report 15429405 (Version 1)
Quarter: 2018Q3

REPORT INFORMATION
  Report Type: Spontaneous
  Country: LV (occurrence: LV)
  Receive Date: 20180926
  Receipt Date: 20180926
  Transmission Date: 20181010
  Serious: Yes (Other)
  Sender: FDA-Public Use
  Company Number: PHHY2018LV104766

PATIENT
  Age: 28 Year
  Sex: Female

DRUGS (2)
  1. SALMETEROL [Suspect]
     Active Substance: SALMETEROL
     Indication: PRODUCT USED FOR UNKNOWN INDICATION
     Dosage: 0.1 MG, PRN
     Route: 065
  2. FLUTICASONE PROPIONATE. [Suspect]
     Active Substance: FLUTICASONE PROPIONATE
     Indication: PRODUCT USED FOR UNKNOWN INDICATION
     Dosage: 2 DF, QD 2 PUFF(S)
     Route: 065

REACTIONS (5)
  - Asthenia [Unknown]
  - Wheezing [Unknown]
  - Cough [Unknown]
  - Pulmonary tuberculosis [Unknown]
  - Night sweats [Unknown]

NARRATIVE: CASE EVENT DATE: 201708
